FAERS Safety Report 6533612-X (Version None)
Quarter: 2010Q1

REPORT INFORMATION
  Report Type: 
  Country: None (occurrence: None)
  Receive Date: 20100108
  Receipt Date: 20100108
  Transmission Date: 20100710
  Serious: No
  Sender: FDA-Public Use
  Company Number: None

PATIENT
  Sex: Female

DRUGS (1)
  1. AMOXICILLIN [Suspect]
     Dosage: 400 MG/5 MLS TAKE 1 TSP BID ORAL
     Route: 048
     Dates: start: 20091222

REACTIONS (1)
  - RASH GENERALISED [None]
